FAERS Safety Report 5839809-6 (Version None)
Quarter: 2008Q3

REPORT INFORMATION
  Report Type: 
  Country: None (occurrence: None)
  Receive Date: 20080811
  Receipt Date: 20080516
  Transmission Date: 20090109
  Serious: No
  Sender: FDA-Public Use
  Company Number: US-BAYER-200823533NA

PATIENT
  Age: 40 Year
  Sex: Female
  Weight: 47 kg

DRUGS (1)
  1. MIRENA [Suspect]
     Indication: VAGINAL HAEMORRHAGE
     Route: 015
     Dates: start: 20071101, end: 20080509

REACTIONS (6)
  - AFFECT LABILITY [None]
  - FLATULENCE [None]
  - MIGRAINE [None]
  - PREMENSTRUAL SYNDROME [None]
  - PROCEDURAL PAIN [None]
  - VAGINAL HAEMORRHAGE [None]
